FAERS Safety Report 25188266 (Version 1)
Quarter: 2025Q2

REPORT INFORMATION
  Report Type: Spontaneous
  Country: FR (occurrence: FR)
  Receive Date: 20250411
  Receipt Date: 20250411
  Transmission Date: 20250716
  Serious: Yes (Other)
  Sender: RANBAXY
  Company Number: FR-AFSSAPS-NT2025000062

PATIENT
  Age: 75 Year
  Sex: Female

DRUGS (1)
  1. OXALIPLATIN [Suspect]
     Active Substance: OXALIPLATIN
     Indication: Colorectal adenoma
     Route: 040
     Dates: start: 20241223

REACTIONS (3)
  - Laryngospasm [Unknown]
  - Pain [Unknown]
  - Fear of death [Unknown]

NARRATIVE: CASE EVENT DATE: 20250121
